FAERS Safety Report 6022217-5 (Version None)
Quarter: 2008Q4

REPORT INFORMATION
  Report Type: 
  Country: None (occurrence: None)
  Receive Date: 20081229
  Receipt Date: 20081219
  Transmission Date: 20090506
  Serious: Yes (Death, Hospitalization, Other)
  Sender: FDA-Public Use
  Company Number: GR-ABBOTT-07P-066-0369464-00

PATIENT
  Sex: Female
  Weight: 56 kg

DRUGS (4)
  1. HUMIRA [Suspect]
     Indication: JUVENILE ARTHRITIS
     Route: 058
     Dates: start: 20070103, end: 20070404
  2. HUMIRA [Suspect]
     Route: 058
     Dates: start: 20040225, end: 20060329
  3. METHOTREXATE [Concomitant]
     Indication: JUVENILE ARTHRITIS
     Dosage: 15 MG/SQUARE METER OF BODY
     Route: 065
     Dates: start: 19890101, end: 20070404
  4. CORTICOSTEROIDS [Concomitant]
     Indication: JUVENILE ARTHRITIS
     Dates: start: 19890101, end: 20070404

REACTIONS (9)
  - ANOREXIA [None]
  - ANURIA [None]
  - APNOEA [None]
  - BLOOD PRESSURE DECREASED [None]
  - CARDIAC ARREST [None]
  - HEADACHE [None]
  - INFECTION [None]
  - PYREXIA [None]
  - SEPTIC SHOCK [None]
